FAERS Safety Report 7468927-4 (Version None)
Quarter: 2011Q2

REPORT INFORMATION
  Report Type: 
  Country: None (occurrence: None)
  Receive Date: 20110428
  Receipt Date: 20110419
  Transmission Date: 20111010
  Serious: Yes (Hospitalization)
  Sender: FDA-Public Use
  Company Number: 2011-0200

PATIENT
  Age: 41 Year
  Sex: Female

DRUGS (2)
  1. UNSPECIFIED TABLETS (ALL OTHER THERAPEUTIC PRODUCTS) [Suspect]
     Indication: PRODUCT USED FOR UNKNOWN INDICATION
  2. APO-GO AMPOULES (APO-GO) (APOMORPHINE HYDROCHLORIDE (AMPOMORPHINE HYDR [Suspect]
     Indication: PRODUCT USED FOR UNKNOWN INDICATION
     Dosage: NOT REPORTED, CONTINUES INJECTION, SUBCUTANEOUS
     Route: 058

REACTIONS (2)
  - DEPRESSION [None]
  - HALLUCINATION [None]
